FAERS Safety Report 15640884 (Version 6)
Quarter: 2019Q1

REPORT INFORMATION
  Report Type: Spontaneous
  Country: US (occurrence: US)
  Receive Date: 20181120
  Receipt Date: 20190215
  Transmission Date: 20190417
  Serious: Yes (Hospitalization)
  Sender: FDA-Public Use
  Company Number: US-ACTELION-A-US2018-182025

PATIENT
  Age: 62 Year
  Sex: Female
  Weight: 68.27 kg

DRUGS (3)
  1. LETAIRIS [Concomitant]
     Active Substance: AMBRISENTAN
  2. UPTRAVI [Suspect]
     Active Substance: SELEXIPAG
     Indication: PULMONARY ARTERIAL HYPERTENSION
     Dosage: 1000 MCG, BID
     Route: 048
     Dates: start: 20180411
  3. OPSUMIT [Suspect]
     Active Substance: MACITENTAN
     Indication: PULMONARY ARTERIAL HYPERTENSION
     Dosage: 10 MG, QD
     Route: 048

REACTIONS (9)
  - Road traffic accident [Unknown]
  - Dizziness [Not Recovered/Not Resolved]
  - Sternal fracture [Unknown]
  - Neck injury [Unknown]
  - Confusional state [Not Recovered/Not Resolved]
  - Cerebrovascular accident [Unknown]
  - Lower limb fracture [Unknown]
  - Mental status changes [Unknown]
  - Headache [Unknown]

NARRATIVE: CASE EVENT DATE: 20181130
